FAERS Safety Report 21350378 (Version 2)
Quarter: 2022Q4

REPORT INFORMATION
  Report Type: Report from Study
  Country: CA (occurrence: CA)
  Receive Date: 20220919
  Receipt Date: 20221003
  Transmission Date: 20230112
  Serious: Yes (Death, Life-Threatening, Hospitalization, Other)
  Sender: FDA-Public Use
  Company Number: CA-AstraZeneca-2022A318887

PATIENT
  Sex: Female

DRUGS (1)
  1. ENHERTU [Suspect]
     Active Substance: FAM-TRASTUZUMAB DERUXTECAN-NXKI
     Indication: HER2 positive breast cancer
     Dosage: 502 MG, ONCE EVERY 3 WK
     Route: 042
     Dates: start: 20220516, end: 2022

REACTIONS (5)
  - Respiratory failure [Fatal]
  - Malignant neoplasm progression [Unknown]
  - Lung infiltration [Unknown]
  - Anaemia [Unknown]
  - Dyspnoea [Unknown]
